FAERS Safety Report 19632677 (Version 3)
Quarter: 2021Q3

REPORT INFORMATION
  Report Type: Spontaneous
  Country: CA (occurrence: CA)
  Receive Date: 20210728
  Receipt Date: 20210903
  Transmission Date: 20211014
  Serious: Yes (Other)
  Sender: FDA-Public Use
  Company Number: CA-CELLTRION INC.-2021CA010130

PATIENT

DRUGS (22)
  1. INFLECTRA [Suspect]
     Active Substance: INFLIXIMAB-DYYB
     Dosage: 7500 MG/KG EVERY 4 WEEKS
     Route: 042
     Dates: start: 20191018, end: 20200528
  2. INFLECTRA [Suspect]
     Active Substance: INFLIXIMAB-DYYB
     Dosage: 5 MG/KG EVERY 4 WEEKS
     Route: 042
     Dates: start: 20210714
  3. INFLECTRA [Suspect]
     Active Substance: INFLIXIMAB-DYYB
     Dosage: 5 MG/KG EVERY 4 WEEKS
     Route: 042
     Dates: start: 20210611
  4. INFLECTRA [Suspect]
     Active Substance: INFLIXIMAB-DYYB
     Dosage: 5 MG/KG EVERY 4 WEEKS
     Route: 042
     Dates: start: 20210611
  5. INFLECTRA [Suspect]
     Active Substance: INFLIXIMAB-DYYB
     Dosage: 10 MG/KG EVERY 4 WEEKS (DOSE ROUNDED TO NEAREST HUNDRED)
     Route: 042
     Dates: start: 20200925, end: 20201207
  6. SULCRATE PLUS [Concomitant]
     Dosage: 5 ML 4X/DAY
  7. INFLECTRA [Suspect]
     Active Substance: INFLIXIMAB-DYYB
     Indication: CROHN^S DISEASE
     Dosage: 10 MG/KG Q 0, 2, 6 WEEKS, THEN EVERY 8 WEEKS
     Route: 042
     Dates: start: 20190612, end: 20190819
  8. INFLECTRA [Suspect]
     Active Substance: INFLIXIMAB-DYYB
     Dosage: 10 MG/KG AT WEEK 0, 2, 6 AND THEN EVERY 6 WEEKS (RE?INDUCTION)
     Route: 042
     Dates: start: 20200710, end: 20200814
  9. PREDNISONE. [Concomitant]
     Active Substance: PREDNISONE
     Dosage: 1 DF
  10. STATEX [MORPHINE SULFATE] [Concomitant]
     Active Substance: MORPHINE SULFATE
     Dosage: 1 DF 5 MILLIGRAMOS EVERY HOUR AND WHEN NECESSARY.
  11. JAMP CALCIUM [Concomitant]
     Dosage: 500 MG, 2X/DAY
  12. LORAZEPAM TEVA [Concomitant]
     Active Substance: LORAZEPAM
     Dosage: 1DF (1 MILLIGRAM, BEFORE SLEEPING AND WHEN NECESSARY)
  13. M ESLON [Concomitant]
     Active Substance: MORPHINE SULFATE
     Dosage: 1DF (1 MILLIGRAM, AND HALF TABLET TWICE A DAY)
  14. INFLECTRA [Suspect]
     Active Substance: INFLIXIMAB-DYYB
     Dosage: 400 MG EVERY 8 WEEKS
     Route: 042
     Dates: start: 20191018, end: 20200528
  15. INFLECTRA [Suspect]
     Active Substance: INFLIXIMAB-DYYB
     Dosage: 7.5 MG/KG EVERY 4 WEEKS (DOSE ROUNDED TO NEAREST HUNDRED)
     Route: 042
     Dates: start: 20210108, end: 20210301
  16. D GEL [Concomitant]
     Dosage: 1000 IU, 1X/DAY
  17. JAMP DICYCLOMINE HCL [Concomitant]
     Dosage: 1 DF (10 MILLIGRAMS 2 TABLETS EVERY 8 HOURS AND 1 TABLET WHEN BEFORE SLEEPING)
  18. MYLAN ESOMEPRAZOLE [Concomitant]
     Dosage: 40 MG, 1X/DAY
  19. SANDOZ ONDANSETRON [Concomitant]
     Dosage: 1 DF (8 MG 3/4 TAB (TID) THREE TIMES A DAY (PRN)
  20. INFLECTRA [Suspect]
     Active Substance: INFLIXIMAB-DYYB
     Dosage: 5 MG/KG EVERY 4 WEEKS
     Route: 042
     Dates: start: 20210331
  21. CLINDAMYCIN. [Concomitant]
     Active Substance: CLINDAMYCIN
     Dosage: 1 DF
  22. RIVA RANITIDINE [Concomitant]
     Dosage: 1 DOSAGE FORM, 150 MG 1 TAB (BID) TWICE DAILY

REACTIONS (3)
  - Haemoglobin decreased [Unknown]
  - Off label use [Unknown]
  - Product use issue [Unknown]
